FAERS Safety Report 6854567-4 (Version None)
Quarter: 2010Q3

REPORT INFORMATION
  Report Type: 
  Country: None (occurrence: None)
  Receive Date: 20100717
  Receipt Date: 20080109
  Transmission Date: 20110219
  Serious: No
  Sender: FDA-Public Use
  Company Number: US-PFIZER INC-2008003500

PATIENT
  Sex: Male
  Weight: 84.4 kg

DRUGS (8)
  1. CHANTIX [Suspect]
     Indication: SMOKING CESSATION THERAPY
     Route: 048
     Dates: start: 20080104
  2. PENTOXIFYLLINE [Concomitant]
  3. CLONAZEPAM [Concomitant]
  4. TRAZODONE HYDROCHLORIDE [Concomitant]
  5. PLAVIX [Concomitant]
  6. LOVASTATIN [Concomitant]
  7. ATENOLOL [Concomitant]
  8. ACETYLSALICYLIC ACID [Concomitant]

REACTIONS (2)
  - RHINORRHOEA [None]
  - SLEEP DISORDER [None]
